FAERS Safety Report 5658833-X (Version None)
Quarter: 2008Q1

REPORT INFORMATION
  Report Type: 
  Country: None (occurrence: None)
  Receive Date: 20080310
  Receipt Date: 20070425
  Transmission Date: 20080703
  Serious: No
  Sender: FDA-Public Use
  Company Number: US-BAYER-200711282BCC

PATIENT
  Age: 86 Year
  Sex: Female
  Weight: 61 kg

DRUGS (5)
  1. ALEVE [Suspect]
     Indication: ARTHRITIS
     Dosage: UNIT DOSE: 220 MG
     Route: 048
     Dates: start: 20070418, end: 20070424
  2. LOVASTATIN [Concomitant]
  3. FOSAMAX [Concomitant]
  4. FLOVENT [Concomitant]
  5. XALATAN [Concomitant]

REACTIONS (1)
  - CONSTIPATION [None]
